FAERS Safety Report 5268897-3 (Version None)
Quarter: 2007Q1

REPORT INFORMATION
  Report Type: 
  Country: None (occurrence: None)
  Receive Date: 20061212
  Receipt Date: 20041123
  Transmission Date: 20070707
  Serious: No
  Sender: FDA-Public Use
  Company Number: 2004UW20675

PATIENT
  Age: 86 Year
  Sex: Male
  Weight: 65.7716 kg

DRUGS (2)
  1. CASODEX [Suspect]
     Indication: PROSTATE CANCER
  2. LUPRON [Concomitant]

REACTIONS (3)
  - ASTHENIA [None]
  - BONE PAIN [None]
  - DISEASE PROGRESSION [None]
